FAERS Safety Report 6851769-8 (Version None)
Quarter: 2010Q3

REPORT INFORMATION
  Report Type: 
  Country: None (occurrence: None)
  Receive Date: 20100717
  Receipt Date: 20071029
  Transmission Date: 20110219
  Serious: No
  Sender: FDA-Public Use
  Company Number: US-PFIZER INC-2007092270

PATIENT
  Sex: Female

DRUGS (11)
  1. CHANTIX [Suspect]
  2. NORCO [Concomitant]
  3. DIURETICS [Concomitant]
  4. SKELAXIN [Concomitant]
  5. SYNTHROID [Concomitant]
  6. ZOCOR [Concomitant]
  7. POTASSIUM CHLORIDE [Concomitant]
  8. FOLIC ACID [Concomitant]
  9. CENTRUM SILVER [Concomitant]
  10. FISH OIL [Concomitant]
  11. CALCIUM WITH VITAMIN D [Concomitant]

REACTIONS (3)
  - ABDOMINAL DISTENSION [None]
  - DRUG INTERACTION [None]
  - FLATULENCE [None]
